FAERS Safety Report 5096092-X (Version None)
Quarter: 2006Q3

REPORT INFORMATION
  Report Type: 
  Country: None (occurrence: None)
  Receive Date: 20060731
  Receipt Date: 20060425
  Transmission Date: 20061208
  Serious: No
  Sender: FDA-Public Use
  Company Number: 2006PV012733

PATIENT
  Age: 72 Year
  Sex: Female
  Weight: 98.4306 kg

DRUGS (4)
  1. BYETTA [Suspect]
     Indication: DIABETES MELLITUS NON-INSULIN-DEPENDENT
     Dosage: 5 MCG;BID;SC
     Route: 058
     Dates: start: 20060423
  2. AMARYL [Concomitant]
  3. COUMADIN [Concomitant]
  4. ASPIRIN [Concomitant]

REACTIONS (1)
  - VAGINAL HAEMORRHAGE [None]
